FAERS Safety Report 10913425 (Version 2)
Quarter: 2015Q2

REPORT INFORMATION
  Report Type: Spontaneous
  Country: US (occurrence: US)
  Receive Date: 20150313
  Receipt Date: 20150416
  Transmission Date: 20150821
  Serious: Yes (Other)
  Sender: FDA-Public Use
  Company Number: US-BAYER-2015-033370

PATIENT
  Age: 21 Year
  Sex: Female
  Weight: 68.93 kg

DRUGS (1)
  1. MIRENA [Suspect]
     Active Substance: LEVONORGESTREL
     Indication: CONTRACEPTION
     Dosage: 20 MCG/24HR, CONT
     Route: 015
     Dates: start: 20141211, end: 20150224

REACTIONS (4)
  - Abdominal pain lower [Recovered/Resolved]
  - Embedded device [Recovered/Resolved]
  - Pain [Recovered/Resolved]
  - Road traffic accident [None]

NARRATIVE: CASE EVENT DATE: 20150220
